FAERS Safety Report 21840974 (Version 1)
Quarter: 2023Q1

REPORT INFORMATION
  Report Type: Report from Study
  Country: EG (occurrence: EG)
  Receive Date: 20230110
  Receipt Date: 20230110
  Transmission Date: 20230418
  Serious: Yes (Other)
  Sender: FDA-Public Use
  Company Number: EG-BAYER-2022A173941

PATIENT
  Sex: Female

DRUGS (11)
  1. EYLEA [Suspect]
     Active Substance: AFLIBERCEPT
     Indication: Macular oedema
     Dosage: UNK,LEFT EYE; SOLUTION FOR INJECTION, 40 MG/ML
     Route: 031
     Dates: start: 2019
  2. EYLEA [Suspect]
     Active Substance: AFLIBERCEPT
     Indication: Retinal oedema
     Dosage: UNK,LEFT EYE; SOLUTION FOR INJECTION, 40 MG/ML
  3. EYLEA [Suspect]
     Active Substance: AFLIBERCEPT
     Indication: Retinal exudates
     Dosage: UNK,LEFT EYE; SOLUTION FOR INJECTION, 40 MG/ML
  4. EYLEA [Suspect]
     Active Substance: AFLIBERCEPT
     Dosage: UNK,LEFT EYE; SOLUTION FOR INJECTION, 40 MG/ML
  5. EYLEA [Suspect]
     Active Substance: AFLIBERCEPT
     Dosage: UNK,LEFT EYE; SOLUTION FOR INJECTION, 40 MG/ML
  6. EYLEA [Suspect]
     Active Substance: AFLIBERCEPT
     Dosage: UNK,LEFT EYE; SOLUTION FOR INJECTION, 40 MG/ML
  7. EYLEA [Suspect]
     Active Substance: AFLIBERCEPT
     Dosage: UNK,LEFT EYE; SOLUTION FOR INJECTION, 40 MG/ML
  8. EYLEA [Suspect]
     Active Substance: AFLIBERCEPT
     Dosage: UNK,LEFT EYE; SOLUTION FOR INJECTION, 40 MG/ML
  9. EYLEA [Suspect]
     Active Substance: AFLIBERCEPT
     Dosage: UNK, RIGHT EYE; SOLUTION FOR INJECTION, 40 MG/ML
     Route: 031
     Dates: start: 20221208, end: 20221208
  10. PROFEN [IBUPROFEN] [Concomitant]
     Indication: Antiinflammatory therapy
     Dosage: 2 TABS/DAY
  11. ISOPTIN [Concomitant]
     Active Substance: VERAPAMIL HYDROCHLORIDE
     Indication: Antiinflammatory therapy
     Dosage: 1 TAB/DAY

REACTIONS (4)
  - Retinal haemorrhage [Unknown]
  - Retinal oedema [Not Recovered/Not Resolved]
  - Off label use [Not Recovered/Not Resolved]
  - Vision blurred [Recovering/Resolving]

NARRATIVE: CASE EVENT DATE: 20221207
